FAERS Safety Report 12795721 (Version 8)
Quarter: 2017Q4

REPORT INFORMATION
  Report Type: Report from Study
  Country: KR (occurrence: KR)
  Receive Date: 20160929
  Receipt Date: 20171117
  Transmission Date: 20180320
  Serious: Yes (Hospitalization)
  Sender: FDA-Public Use
  Company Number: KR-ROCHE-1832604

PATIENT
  Age: 49 Year
  Sex: Male
  Weight: 58 kg

DRUGS (92)
  1. ALOXI [Concomitant]
     Active Substance: PALONOSETRON HYDROCHLORIDE
     Route: 065
     Dates: start: 20160427, end: 20160427
  2. ARESTAL [Concomitant]
     Active Substance: LOPERAMIDE OXIDE
     Indication: DIARRHOEA
     Route: 065
     Dates: start: 20160622, end: 20160623
  3. DEXAMETHASONE. [Concomitant]
     Active Substance: DEXAMETHASONE
     Route: 065
     Dates: start: 20160212, end: 20160214
  4. DEXAMETHASONE. [Concomitant]
     Active Substance: DEXAMETHASONE
     Route: 065
     Dates: start: 20160116, end: 20160118
  5. GASTER (SOUTH KOREA) [Concomitant]
     Indication: PREMEDICATION
     Route: 065
     Dates: start: 20160310, end: 20160312
  6. GASTER (SOUTH KOREA) [Concomitant]
     Route: 065
     Dates: start: 20160331, end: 20160402
  7. HEPARIN [Concomitant]
     Active Substance: HEPARIN SODIUM
     Route: 065
     Dates: start: 20160414, end: 20160414
  8. HEPARIN [Concomitant]
     Active Substance: HEPARIN SODIUM
     Route: 065
     Dates: start: 20160117, end: 20160117
  9. HEPARIN [Concomitant]
     Active Substance: HEPARIN SODIUM
     Route: 065
     Dates: start: 20160527, end: 20160527
  10. HEPARIN [Concomitant]
     Active Substance: HEPARIN SODIUM
     Route: 065
     Dates: start: 20160708, end: 20160708
  11. MACPERAN [Concomitant]
     Active Substance: METOCLOPRAMIDE HYDROCHLORIDE
     Indication: NAUSEA
     Route: 065
     Dates: start: 20160312, end: 20160317
  12. MYPOL (SOUTH KOREA) [Concomitant]
     Route: 065
     Dates: start: 20160324, end: 20160331
  13. RINO EBASTEL [Concomitant]
     Indication: RHINORRHOEA
     Route: 065
     Dates: start: 20160310, end: 20160515
  14. 5-FLUOROURACIL [Suspect]
     Active Substance: FLUOROURACIL
     Dosage: INDUCTION PHASE DOSAGE PER INVESTIGATOR
     Route: 042
     Dates: start: 20160115, end: 20160427
  15. STILNOX [Concomitant]
     Active Substance: ZOLPIDEM TARTRATE
     Indication: INSOMNIA
     Route: 065
     Dates: start: 20160323, end: 20160512
  16. ALOXI [Concomitant]
     Active Substance: PALONOSETRON HYDROCHLORIDE
     Route: 065
     Dates: start: 20160224, end: 20160224
  17. AUGMENTIN [Concomitant]
     Active Substance: AMOXICILLIN\CLAVULANATE POTASSIUM
     Indication: TOOTHACHE
     Route: 065
     Dates: start: 20160322, end: 20160323
  18. DEXAMETHASONE. [Concomitant]
     Active Substance: DEXAMETHASONE
     Route: 065
     Dates: start: 20160211, end: 20160211
  19. DEXAMETHASONE. [Concomitant]
     Active Substance: DEXAMETHASONE
     Route: 065
     Dates: start: 20160413, end: 20160415
  20. GASTER (SOUTH KOREA) [Concomitant]
     Route: 065
     Dates: start: 20160212, end: 20160214
  21. HEPARIN [Concomitant]
     Active Substance: HEPARIN SODIUM
     Route: 065
     Dates: start: 20160213, end: 20160213
  22. MYPOL (SOUTH KOREA) [Concomitant]
     Indication: TOOTHACHE
     Route: 065
     Dates: start: 20160518
  23. NAXEN-F [Concomitant]
     Indication: TOOTHACHE
     Route: 065
     Dates: start: 20160401
  24. ULTRACET SEMI [Concomitant]
     Route: 065
     Dates: start: 20160115, end: 20160126
  25. XYZAL [Concomitant]
     Active Substance: LEVOCETIRIZINE DIHYDROCHLORIDE
     Indication: URTICARIA
     Route: 065
     Dates: start: 20160622, end: 20160710
  26. ATEZOLIZUMAB. [Suspect]
     Active Substance: ATEZOLIZUMAB
     Indication: COLORECTAL CANCER METASTATIC
     Dosage: MOST RECENT DOSE PRIOR TO AE ONSET: 31/AUG/2016 AT 1300 HRS (8TH CYCLE)
     Route: 042
     Dates: start: 20160525
  27. LEUCOVORIN. [Suspect]
     Active Substance: LEUCOVORIN
     Indication: COLORECTAL CANCER METASTATIC
     Dosage: MAINTENANCE PHASE ?MOST RECENT DOSE PRIOR TO EVEN ONSET: 31/AUG/2016 AT 1400-1600 HRS 600 MG (8TH CY
     Route: 042
     Dates: start: 20160525
  28. DEXAMETHASONE. [Concomitant]
     Active Substance: DEXAMETHASONE
     Route: 065
     Dates: start: 20160412, end: 20160412
  29. DEXAMETHASONE. [Concomitant]
     Active Substance: DEXAMETHASONE
     Route: 065
     Dates: start: 20160224, end: 20160224
  30. DEXAMETHASONE. [Concomitant]
     Active Substance: DEXAMETHASONE
     Route: 065
     Dates: start: 20160428, end: 20160430
  31. HEPARIN [Concomitant]
     Active Substance: HEPARIN SODIUM
     Route: 065
     Dates: start: 20160401, end: 20160401
  32. HEPARIN [Concomitant]
     Active Substance: HEPARIN SODIUM
     Route: 065
     Dates: start: 20160624, end: 20160624
  33. MAGNESIUM OXIDE. [Concomitant]
     Active Substance: MAGNESIUM OXIDE
     Route: 065
     Dates: start: 20160624
  34. MAGNESIUM OXIDE. [Concomitant]
     Active Substance: MAGNESIUM OXIDE
     Route: 065
     Dates: start: 20160127, end: 20160618
  35. PHAZYME-95 [Concomitant]
     Indication: PROPHYLAXIS
     Route: 065
     Dates: start: 20160525, end: 20160805
  36. AIRTAL [Concomitant]
     Active Substance: ACECLOFENAC
     Indication: TOOTHACHE
     Route: 065
     Dates: start: 20161018, end: 20161020
  37. UNASYN (AMPICILLIN SODIUM/SULBACTAM SODIUM) [Concomitant]
     Indication: TOOTHACHE
     Route: 065
     Dates: start: 20161018, end: 20161020
  38. BEVACIZUMAB. [Suspect]
     Active Substance: BEVACIZUMAB
     Dosage: MAINTENANCE PHASE FREQUENCY AND DOSE (PER PROTOCOL)?MOST RECENT DOSE PRIOR TO AE ONSET: 31/AUG/2016,
     Route: 042
     Dates: start: 20160525, end: 20160831
  39. ALLEGRA [Concomitant]
     Active Substance: FEXOFENADINE HYDROCHLORIDE
     Route: 065
     Dates: start: 20160803
  40. ALMAGENT [Concomitant]
     Route: 065
     Dates: start: 20160324, end: 20160331
  41. AUGMENTIN [Concomitant]
     Active Substance: AMOXICILLIN\CLAVULANATE POTASSIUM
     Route: 065
     Dates: start: 20160324, end: 20160331
  42. DEXAMETHASONE. [Concomitant]
     Active Substance: DEXAMETHASONE
     Route: 065
     Dates: start: 20160225, end: 20160227
  43. DEXAMETHASONE. [Concomitant]
     Active Substance: DEXAMETHASONE
     Route: 065
     Dates: start: 20160127, end: 20160127
  44. DUPHALAC EASY [Concomitant]
     Route: 065
     Dates: start: 20160624
  45. DUPHALAC EASY [Concomitant]
     Route: 065
     Dates: start: 20160127, end: 20160618
  46. HEPARIN [Concomitant]
     Active Substance: HEPARIN SODIUM
     Dosage: CHEMOPORT FLUSHING
     Route: 065
     Dates: start: 20160311, end: 20160311
  47. HEPARIN [Concomitant]
     Active Substance: HEPARIN SODIUM
     Route: 065
     Dates: start: 20160722, end: 20160722
  48. HEPARIN [Concomitant]
     Active Substance: HEPARIN SODIUM
     Route: 065
     Dates: start: 20160429, end: 20160429
  49. HEPARIN [Concomitant]
     Active Substance: HEPARIN SODIUM
     Route: 065
     Dates: start: 20160805, end: 20160805
  50. PYRIDOXINE [Concomitant]
     Active Substance: PYRIDOXINE
     Indication: LATENT TUBERCULOSIS
     Route: 065
     Dates: start: 20160520
  51. SODIUM BICARBONATE. [Concomitant]
     Active Substance: SODIUM BICARBONATE
     Indication: STOMATITIS
     Route: 065
     Dates: start: 20160428, end: 20160515
  52. ESOMEZOL [Concomitant]
     Route: 065
     Dates: start: 20161018, end: 20161020
  53. LEUCOVORIN. [Suspect]
     Active Substance: LEUCOVORIN
     Dosage: INDUCTION PHASE DOSAGE PER INVESTIGATOR
     Route: 042
     Dates: start: 20160115, end: 20160427
  54. ALOXI [Concomitant]
     Active Substance: PALONOSETRON HYDROCHLORIDE
     Route: 065
     Dates: start: 20160330, end: 20160330
  55. DESOWEN [Concomitant]
     Active Substance: DESONIDE
     Indication: PRURITUS
     Route: 065
     Dates: start: 20160622, end: 20160624
  56. DEXAMETHASONE. [Concomitant]
     Active Substance: DEXAMETHASONE
     Route: 065
     Dates: start: 20160330, end: 20160330
  57. DEXAMETHASONE. [Concomitant]
     Active Substance: DEXAMETHASONE
     Route: 065
     Dates: start: 20160331, end: 20160402
  58. GASTER (SOUTH KOREA) [Concomitant]
     Route: 065
     Dates: start: 20160413, end: 20160415
  59. MYPOL (SOUTH KOREA) [Concomitant]
     Route: 065
     Dates: start: 20160211, end: 20160224
  60. POXEN [Concomitant]
     Route: 065
     Dates: start: 20160324, end: 20160331
  61. SODIUM BICARBONATE. [Concomitant]
     Active Substance: SODIUM BICARBONATE
     Indication: PROPHYLAXIS
     Route: 065
     Dates: start: 20160516, end: 20160519
  62. ULTRACET SEMI [Concomitant]
     Indication: TOOTHACHE
     Route: 065
     Dates: start: 20160211, end: 20160224
  63. ULTRACET SEMI [Concomitant]
     Route: 065
     Dates: start: 20160127, end: 20160210
  64. YUHANZID [Concomitant]
     Active Substance: ISONIAZID
     Indication: LATENT TUBERCULOSIS
     Route: 065
     Dates: start: 20160520, end: 20160923
  65. NEXIUM [Concomitant]
     Active Substance: ESOMEPRAZOLE MAGNESIUM
     Indication: PROPHYLAXIS
     Route: 065
     Dates: start: 20160923, end: 20160926
  66. MEDILAC DS [Concomitant]
     Dosage: 1 CAPSULE
     Route: 065
     Dates: start: 20161018, end: 20161020
  67. 5-FLUOROURACIL [Suspect]
     Active Substance: FLUOROURACIL
     Indication: COLORECTAL CANCER METASTATIC
     Dosage: MAINTENANCE PHASE: 1,600 - 2,400 MG/M2, DAY 1 OF EVERY 2-WEEK CYCLE (PER PROTOCOL)?MOST RECENT DOSE
     Route: 042
     Dates: start: 20160525
  68. OXALIPLATIN. [Suspect]
     Active Substance: OXALIPLATIN
     Indication: COLORECTAL CANCER METASTATIC
     Dosage: INDUCTION PHASE DOSAGE PER INVESTIGATOR
     Route: 042
     Dates: start: 20160115, end: 20160427
  69. ALLEGRA [Concomitant]
     Active Substance: FEXOFENADINE HYDROCHLORIDE
     Indication: URTICARIA
     Route: 065
     Dates: start: 20160622, end: 20160710
  70. ALOXI [Concomitant]
     Active Substance: PALONOSETRON HYDROCHLORIDE
     Route: 065
     Dates: start: 20160309, end: 20160309
  71. DEXAMETHASONE. [Concomitant]
     Active Substance: DEXAMETHASONE
     Indication: PREMEDICATION
     Route: 065
     Dates: start: 20160310, end: 20160312
  72. DEXAMETHASONE. [Concomitant]
     Active Substance: DEXAMETHASONE
     Route: 065
     Dates: start: 20160427, end: 20160427
  73. DEXAMETHASONE. [Concomitant]
     Active Substance: DEXAMETHASONE
     Route: 065
     Dates: start: 20160128, end: 20160130
  74. GANAKHAN [Concomitant]
     Indication: DYSPEPSIA
     Route: 065
     Dates: start: 20160315, end: 20160318
  75. GASTER (SOUTH KOREA) [Concomitant]
     Route: 065
     Dates: start: 20160116, end: 20160118
  76. HEPARIN [Concomitant]
     Active Substance: HEPARIN SODIUM
     Route: 065
     Dates: start: 20160226, end: 20160226
  77. HEPARIN [Concomitant]
     Active Substance: HEPARIN SODIUM
     Route: 065
     Dates: start: 20160129, end: 20160129
  78. ALOXI [Concomitant]
     Active Substance: PALONOSETRON HYDROCHLORIDE
     Route: 065
     Dates: start: 20160412, end: 20160412
  79. ALOXI [Concomitant]
     Active Substance: PALONOSETRON HYDROCHLORIDE
     Route: 065
     Dates: start: 20160115, end: 20160115
  80. DEXAMETHASONE. [Concomitant]
     Active Substance: DEXAMETHASONE
     Route: 065
     Dates: start: 20160309, end: 20160309
  81. GASTER (SOUTH KOREA) [Concomitant]
     Route: 065
     Dates: start: 20160428, end: 20160430
  82. GASTER (SOUTH KOREA) [Concomitant]
     Route: 065
     Dates: start: 20160128, end: 20160130
  83. MYPOL (SOUTH KOREA) [Concomitant]
     Route: 065
     Dates: start: 20160225, end: 20160323
  84. POXEN [Concomitant]
     Indication: TOOTHACHE
     Route: 065
     Dates: start: 20160322, end: 20160323
  85. BEVACIZUMAB. [Suspect]
     Active Substance: BEVACIZUMAB
     Indication: COLORECTAL CANCER METASTATIC
     Dosage: INDUCTION PHASE
     Route: 042
     Dates: start: 20160115, end: 20160427
  86. ALMAGENT [Concomitant]
     Indication: PROPHYLAXIS
     Route: 065
     Dates: start: 20160322, end: 20160323
  87. ALOXI [Concomitant]
     Active Substance: PALONOSETRON HYDROCHLORIDE
     Indication: PREMEDICATION
     Route: 065
     Dates: start: 20160211, end: 20160211
  88. ALOXI [Concomitant]
     Active Substance: PALONOSETRON HYDROCHLORIDE
     Route: 065
     Dates: start: 20160127, end: 20160127
  89. DEXAMETHASONE. [Concomitant]
     Active Substance: DEXAMETHASONE
     Route: 065
     Dates: start: 20160115, end: 20160115
  90. GASTER (SOUTH KOREA) [Concomitant]
     Route: 065
     Dates: start: 20160225, end: 20160227
  91. RINO EBASTEL [Concomitant]
     Route: 065
     Dates: start: 20160211, end: 20160218
  92. XYZAL [Concomitant]
     Active Substance: LEVOCETIRIZINE DIHYDROCHLORIDE
     Route: 065
     Dates: start: 20160803

REACTIONS (1)
  - Hepatotoxicity [Recovered/Resolved]

NARRATIVE: CASE EVENT DATE: 20160920
